FAERS Safety Report 7111551-3 (Version None)
Quarter: 2010Q4

REPORT INFORMATION
  Report Type: 
  Country: None (occurrence: None)
  Receive Date: 20101118
  Receipt Date: 20101109
  Transmission Date: 20110411
  Serious: Yes (Hospitalization)
  Sender: FDA-Public Use
  Company Number: US-CELGENEUS-163-21880-10102250

PATIENT
  Sex: Male

DRUGS (6)
  1. REVLIMID [Suspect]
     Route: 048
     Dates: start: 20100905, end: 20101007
  2. TARGRETIN [Concomitant]
     Route: 048
     Dates: start: 20090101, end: 20101007
  3. PERCOCET [Concomitant]
     Indication: PAIN
     Dosage: 5/325MG
     Route: 048
  4. METOPROLOL [Concomitant]
     Indication: HYPERTENSION
     Route: 048
  5. ENALAPRIL MALEATE [Concomitant]
     Indication: HYPERTENSION
     Route: 048
  6. INSULIN [Concomitant]
     Dosage: 70/30; 30
     Route: 058

REACTIONS (3)
  - MALIGNANT NEOPLASM PROGRESSION [None]
  - MYCOSIS FUNGOIDES [None]
  - PETIT MAL EPILEPSY [None]
